FAERS Safety Report 7224529-6 (Version None)
Quarter: 2011Q1

REPORT INFORMATION
  Report Type: 
  Country: None (occurrence: None)
  Receive Date: 20110113
  Receipt Date: 20110107
  Transmission Date: 20110831
  Serious: No
  Sender: FDA-Public Use
  Company Number: US-PFIZER INC-2011005062

PATIENT
  Sex: Male
  Weight: 70.295 kg

DRUGS (3)
  1. CADUET [Suspect]
     Indication: CARDIAC DISORDER
     Dosage: 10 G, UNK
     Route: 048
     Dates: start: 20100101, end: 20100101
  2. HYDROCHLOROTHIAZIDE [Concomitant]
     Indication: HYPERTENSION
     Dosage: UNK
     Route: 048
  3. COZAAR [Concomitant]
     Dosage: UNK
     Route: 048

REACTIONS (1)
  - PRURITUS GENERALISED [None]
